FAERS Safety Report 5964561-3 (Version None)
Quarter: 2008Q4

REPORT INFORMATION
  Report Type: 
  Country: None (occurrence: None)
  Receive Date: 20081122
  Receipt Date: 20081122
  Transmission Date: 20090506
  Serious: Yes (Life-Threatening, Hospitalization, Other)
  Sender: FDA-Public Use
  Company Number: None

PATIENT
  Age: 60 Year
  Sex: Male
  Weight: 77.1115 kg

DRUGS (2)
  1. PEG-INTRON [Suspect]
     Indication: HEPATITIS C
     Dosage: .5MG WEEKY INTERVENOUS
     Route: 042
     Dates: start: 20080103, end: 20080601
  2. RIBAVIRIN [Suspect]
     Indication: HEPATITIS C
     Dosage: 200 MG WEEKLY ORAL
     Route: 048
     Dates: start: 20080103, end: 20080601

REACTIONS (9)
  - DEHYDRATION [None]
  - DIABETES MELLITUS [None]
  - DIARRHOEA [None]
  - HYPERTENSION [None]
  - MALAISE [None]
  - PROTEIN URINE PRESENT [None]
  - SWELLING [None]
  - VOMITING [None]
  - WEIGHT DECREASED [None]
